FAERS Safety Report 6551544-8 (Version None)
Quarter: 2010Q1

REPORT INFORMATION
  Report Type: 
  Country: None (occurrence: None)
  Receive Date: 20100126
  Receipt Date: 20100120
  Transmission Date: 20100710
  Serious: Yes (Other)
  Sender: FDA-Public Use
  Company Number: PHHY2009DE38237

PATIENT
  Age: 69 Year
  Sex: Female

DRUGS (3)
  1. FEMARA [Suspect]
     Indication: BREAST CANCER
     Dosage: 2.5 MG, QD
     Route: 048
     Dates: start: 20090209
  2. ATACAND [Concomitant]
  3. ZOMETA [Concomitant]
     Indication: OSTEOPOROSIS PROPHYLAXIS
     Dosage: ONCE EVERY SIX MONTHS

REACTIONS (10)
  - ABDOMINAL PAIN UPPER [None]
  - ARTHRALGIA [None]
  - DIARRHOEA [None]
  - DYSPEPSIA [None]
  - GASTROINTESTINAL DISORDER [None]
  - HIATUS HERNIA [None]
  - JOINT STIFFNESS [None]
  - NAUSEA [None]
  - REFLUX OESOPHAGITIS [None]
  - WEIGHT INCREASED [None]
